FAERS Safety Report 8094101-7 (Version None)
Quarter: 2012Q1

REPORT INFORMATION
  Report Type: 
  Country: None (occurrence: None)
  Receive Date: 20120131
  Receipt Date: 20120126
  Transmission Date: 20120608
  Serious: Yes (Life-Threatening, Hospitalization, Other)
  Sender: FDA-Public Use
  Company Number: PHHY2012SI003952

PATIENT
  Age: 69 Year
  Sex: Male

DRUGS (5)
  1. METFORMIN HCL [Concomitant]
     Indication: DIABETES MELLITUS
     Dosage: 850 MG, BID
     Route: 048
  2. GLICLAZIDE [Concomitant]
     Indication: DIABETES MELLITUS
  3. TASIGNA [Suspect]
     Indication: CHRONIC MYELOID LEUKAEMIA
     Dosage: 300 MG, BID
     Route: 048
     Dates: start: 20120111, end: 20120115
  4. ATORVASTATIN [Concomitant]
     Indication: HYPERCHOLESTEROLAEMIA
     Dosage: 40 MG, QD
  5. AMLODIPINE [Concomitant]
     Indication: HYPERTENSION
     Dosage: 5 MG, QD

REACTIONS (5)
  - MYOCARDIAL INFARCTION [None]
  - CORONARY ARTERY DISEASE [None]
  - PULMONARY OEDEMA [None]
  - CARDIOGENIC SHOCK [None]
  - ATRIOVENTRICULAR BLOCK [None]
